FAERS Safety Report 4861042-5 (Version None)
Quarter: 2005Q4

REPORT INFORMATION
  Report Type: 
  Country: None (occurrence: None)
  Receive Date: 20051216
  Receipt Date: 20051209
  Transmission Date: 20060501
  Serious: Yes (Hospitalization)
  Sender: FDA-Public Use
  Company Number: KII-2005-0020255

PATIENT
  Age: 54 Year
  Sex: Female

DRUGS (4)
  1. OXYCONTIN [Suspect]
     Dosage: UNK, QID, ORAL
     Route: 048
  2. METOPROLOL TARTRATE [Suspect]
     Dosage: UNK, BID, ORAL
     Route: 048
  3. VERAPAMIL HCL [Suspect]
     Dosage: UNK, BID, ORAL
     Route: 048
  4. PENTOSAN POLYSULFATE SODIUM (PENTOSAN POLYSULFATE SODIUM) [Suspect]
     Dosage: UNK, TID, ORAL
     Route: 048

REACTIONS (5)
  - ASTHENIA [None]
  - DYSSTASIA [None]
  - HEART RATE DECREASED [None]
  - INAPPROPRIATE SCHEDULE OF DRUG ADMINISTRATION [None]
  - LOWER LIMB FRACTURE [None]
